FAERS Safety Report 18104130 (Version 1)
Quarter: 2020Q3

REPORT INFORMATION
  Report Type: Spontaneous
  Country: US (occurrence: US)
  Receive Date: 20200801
  Receipt Date: 20200801
  Transmission Date: 20201103
  Serious: No
  Sender: FDA-Public Use
  Company Number: None

PATIENT
  Age: 31 Month
  Sex: Male
  Weight: 13.5 kg

DRUGS (3)
  1. FLOVENT FHA [Concomitant]
  2. AGES 2 YEARS + OLDER CHILDRENS ALLERGY LORATADINE ORAL SOLUTION 5MG/5M [Suspect]
     Active Substance: LORATADINE
     Indication: MULTIPLE ALLERGIES
     Route: 048
     Dates: start: 20200712, end: 20200719
  3. ALBUTEROL. [Concomitant]
     Active Substance: ALBUTEROL

REACTIONS (4)
  - Product odour abnormal [None]
  - Diarrhoea [None]
  - Dermatitis diaper [None]
  - Toxicity to various agents [None]

NARRATIVE: CASE EVENT DATE: 20200712
